FAERS Safety Report 19254975 (Version 1)
Quarter: 2021Q2

REPORT INFORMATION
  Report Type: Spontaneous
  Country: US (occurrence: US)
  Receive Date: 20210513
  Receipt Date: 20210513
  Transmission Date: 20210717
  Serious: No
  Sender: FDA-Public Use
  Company Number: US-ALLERGAN-2026711US

PATIENT
  Sex: Male

DRUGS (1)
  1. FML FORTE [Suspect]
     Active Substance: FLUOROMETHOLONE
     Indication: PRODUCT USED FOR UNKNOWN INDICATION
     Dosage: 2 GTT, BID
     Route: 047
     Dates: start: 20200711, end: 20200714

REACTIONS (2)
  - Product dose omission issue [Unknown]
  - Product packaging quantity issue [Unknown]

NARRATIVE: CASE EVENT DATE: 20200711
